FAERS Safety Report 12637254 (Version 2)
Quarter: 2016Q3

REPORT INFORMATION
  Report Type: Spontaneous
  Country: JP (occurrence: JP)
  Receive Date: 20160809
  Receipt Date: 20160826
  Transmission Date: 20161109
  Serious: Yes (Death)
  Sender: FDA-Public Use
  Company Number: JP-ASTELLAS-2016JP013202

PATIENT
  Age: 9 Decade
  Sex: Male

DRUGS (2)
  1. FUNGUARD [Suspect]
     Active Substance: MICAFUNGIN SODIUM
     Indication: SYSTEMIC CANDIDA
     Route: 041
     Dates: start: 20160519, end: 20160525
  2. FUNGUARD [Suspect]
     Active Substance: MICAFUNGIN SODIUM
     Indication: BRONCHOPULMONARY ASPERGILLOSIS
     Route: 041
     Dates: start: 20160526, end: 20160803

REACTIONS (1)
  - Death [Fatal]

NARRATIVE: CASE EVENT DATE: 20160803
